FAERS Safety Report 18954967 (Version 4)
Quarter: 2021Q4

REPORT INFORMATION
  Report Type: Report from Study
  Country: RU (occurrence: RU)
  Receive Date: 20210301
  Receipt Date: 20211224
  Transmission Date: 20220303
  Serious: Yes (Hospitalization)
  Sender: FDA-Public Use
  Company Number: RU-ABBVIE-21K-251-3793125-00

PATIENT
  Age: 67 Year
  Sex: Female
  Weight: 67 kg

DRUGS (22)
  1. VENCLEXTA [Suspect]
     Active Substance: VENETOCLAX
     Indication: Acute myeloid leukaemia
     Route: 048
     Dates: start: 20201013
  2. VENCLEXTA [Suspect]
     Active Substance: VENETOCLAX
     Route: 048
     Dates: start: 20201117, end: 20201215
  3. VENCLEXTA [Suspect]
     Active Substance: VENETOCLAX
     Route: 048
     Dates: start: 20201219, end: 20210116
  4. VENCLEXTA [Suspect]
     Active Substance: VENETOCLAX
     Route: 048
     Dates: start: 20210118, end: 20210214
  5. VENCLEXTA [Suspect]
     Active Substance: VENETOCLAX
     Route: 048
     Dates: start: 20210305, end: 20210402
  6. VENCLEXTA [Suspect]
     Active Substance: VENETOCLAX
     Route: 048
     Dates: start: 20210408, end: 20210505
  7. VENCLEXTA [Suspect]
     Active Substance: VENETOCLAX
     Route: 048
     Dates: start: 20210604, end: 20210701
  8. VENCLEXTA [Suspect]
     Active Substance: VENETOCLAX
     Route: 048
     Dates: start: 20210722, end: 20210818
  9. VENCLEXTA [Suspect]
     Active Substance: VENETOCLAX
     Route: 048
     Dates: start: 20210907, end: 20211004
  10. VENCLEXTA [Suspect]
     Active Substance: VENETOCLAX
     Route: 048
     Dates: start: 20211006, end: 20211026
  11. VENCLEXTA [Suspect]
     Active Substance: VENETOCLAX
     Route: 048
     Dates: start: 20211119, end: 20211209
  12. VIDAZA [Concomitant]
     Active Substance: AZACITIDINE
     Indication: Acute myeloid leukaemia
     Dates: start: 20201013, end: 20201019
  13. VIDAZA [Concomitant]
     Active Substance: AZACITIDINE
     Dates: start: 20201117, end: 20201123
  14. VIDAZA [Concomitant]
     Active Substance: AZACITIDINE
     Dates: start: 20201219, end: 20201225
  15. VIDAZA [Concomitant]
     Active Substance: AZACITIDINE
     Dates: start: 20210118, end: 20210124
  16. VIDAZA [Concomitant]
     Active Substance: AZACITIDINE
     Dates: start: 20210305, end: 20210311
  17. VIDAZA [Concomitant]
     Active Substance: AZACITIDINE
     Dates: start: 20210408, end: 20210414
  18. VIDAZA [Concomitant]
     Active Substance: AZACITIDINE
     Dates: start: 20210604, end: 20210610
  19. VIDAZA [Concomitant]
     Active Substance: AZACITIDINE
     Dates: start: 20210722, end: 20210728
  20. VIDAZA [Concomitant]
     Active Substance: AZACITIDINE
     Dates: start: 20210907, end: 20210913
  21. VIDAZA [Concomitant]
     Active Substance: AZACITIDINE
     Dates: start: 20211006, end: 20211012
  22. VIDAZA [Concomitant]
     Active Substance: AZACITIDINE
     Dates: start: 20211119, end: 20211125

REACTIONS (2)
  - COVID-19 pneumonia [Recovered/Resolved]
  - Neutropenia [Recovered/Resolved]

NARRATIVE: CASE EVENT DATE: 20210211
